FAERS Safety Report 18573724 (Version 1)
Quarter: 2020Q4

REPORT INFORMATION
  Report Type: Spontaneous
  Country: US (occurrence: US)
  Receive Date: 20201202
  Receipt Date: 20201202
  Transmission Date: 20210114
  Serious: Yes (Hospitalization)
  Sender: FDA-Public Use
  Company Number: None

PATIENT
  Age: 67 Year
  Sex: Male

DRUGS (1)
  1. CANDESARTAN (CANDESARTAN CILEXTIL 32MG TAB) [Suspect]
     Active Substance: CANDESARTAN CILEXETIL
     Indication: HYPERTENSION
     Route: 048
     Dates: start: 20200806, end: 20200807

REACTIONS (2)
  - Nephrolithiasis [None]
  - Acute kidney injury [None]

NARRATIVE: CASE EVENT DATE: 20200903
